FAERS Safety Report 11058893 (Version 1)
Quarter: 2015Q2

REPORT INFORMATION
  Report Type: Spontaneous
  Country: US (occurrence: None)
  Receive Date: 20150422
  Receipt Date: 20150422
  Transmission Date: 20150821
  Serious: No
  Sender: FDA-Public Use
  Company Number: None

PATIENT
  Age: 51 Year
  Sex: Female
  Weight: 73.48 kg

DRUGS (9)
  1. INSULIN PUMP [Concomitant]
     Active Substance: INSULIN NOS
  2. HUMALOG INSULIN CALAN [Concomitant]
  3. PRAVASTATIN [Concomitant]
     Active Substance: PRAVASTATIN\PRAVASTATIN SODIUM
  4. LOSARTAN [Concomitant]
     Active Substance: LOSARTAN
  5. LUTEIN [Concomitant]
     Active Substance: LUTEIN
  6. BENFOTIAMINE [Concomitant]
     Active Substance: BENFOTIAMINE
  7. PROLIA [Suspect]
     Active Substance: DENOSUMAB
     Indication: OSTEOPOROSIS
     Dates: start: 20141229, end: 20150421
  8. TAPAZOLE [Concomitant]
     Active Substance: METHIMAZOLE
  9. ASPIRIN. [Concomitant]
     Active Substance: ASPIRIN

REACTIONS (2)
  - Gait disturbance [None]
  - Pain in extremity [None]

NARRATIVE: CASE EVENT DATE: 20150421
